FAERS Safety Report 22136108 (Version 1)
Quarter: 2023Q1

REPORT INFORMATION
  Report Type: Spontaneous
  Country: GB (occurrence: GB)
  Receive Date: 20230324
  Receipt Date: 20230324
  Transmission Date: 20230417
  Serious: Yes (Hospitalization)
  Sender: FDA-Public Use
  Company Number: GB-MHRA-MED-202303131525103820-JQRHL

PATIENT
  Age: 73 Year
  Sex: Male

DRUGS (1)
  1. PIRFENIDONE [Suspect]
     Active Substance: PIRFENIDONE
     Indication: Product used for unknown indication
     Dosage: 801 MILLIGRAM DAILY; 267MG 3 PER DAY
     Route: 065

REACTIONS (1)
  - Cholecystectomy [Recovering/Resolving]
